FAERS Safety Report 5529228-4 (Version None)
Quarter: 2007Q4

REPORT INFORMATION
  Report Type: 
  Country: None (occurrence: None)
  Receive Date: 20071129
  Receipt Date: 20070723
  Transmission Date: 20080405
  Serious: No
  Sender: FDA-Public Use
  Company Number: A0665817A

PATIENT
  Age: 47 Year
  Sex: Male

DRUGS (8)
  1. WELLBUTRIN SR [Suspect]
     Indication: DEPRESSION
     Dosage: 150MG TWICE PER DAY
     Route: 048
     Dates: start: 20070601
  2. WELLBUTRIN [Suspect]
     Indication: DEPRESSION
     Dosage: 75MG UNKNOWN
     Route: 048
  3. EFFEXOR [Concomitant]
  4. MIRAPEX [Concomitant]
  5. CLONIDINE [Concomitant]
  6. FLOMAX [Concomitant]
  7. ALLOPURINOL [Concomitant]
  8. LIPITOR [Concomitant]

REACTIONS (3)
  - DIZZINESS [None]
  - DRUG INEFFECTIVE [None]
  - FEELING ABNORMAL [None]
